FAERS Safety Report 18616334 (Version 1)
Quarter: 2020Q4

REPORT INFORMATION
  Report Type: Spontaneous
  Country: JP (occurrence: JP)
  Receive Date: 20201214
  Receipt Date: 20201214
  Transmission Date: 20210114
  Serious: Yes (Other)
  Sender: FDA-Public Use
  Company Number: JP-ROCHE-2732523

PATIENT
  Age: 71 Year
  Sex: Female

DRUGS (4)
  1. LUCENTIS [Suspect]
     Active Substance: RANIBIZUMAB
     Indication: AGE-RELATED MACULAR DEGENERATION
     Dosage: UNK
     Route: 050
     Dates: start: 20200430, end: 20200430
  2. BEOVU [Suspect]
     Active Substance: BROLUCIZUMAB-DBLL
     Indication: AGE-RELATED MACULAR DEGENERATION
     Dosage: 6MG, RIGHT EYE
     Route: 050
     Dates: start: 20200625, end: 20200625
  3. BEOVU [Suspect]
     Active Substance: BROLUCIZUMAB-DBLL
     Dosage: 6MG, RIGHT EYE
     Route: 050
     Dates: start: 20200819, end: 20200819
  4. AFLIBERCEPT [Suspect]
     Active Substance: AFLIBERCEPT
     Indication: AGE-RELATED MACULAR DEGENERATION
     Route: 050
     Dates: end: 20200528

REACTIONS (4)
  - Iritis [Recovered/Resolved]
  - Anterior chamber inflammation [Recovered/Resolved]
  - Anterior chamber cell [Recovered/Resolved]
  - Sudden visual loss [Unknown]

NARRATIVE: CASE EVENT DATE: 20200722
